FAERS Safety Report 7970843-6 (Version None)
Quarter: 2011Q4

REPORT INFORMATION
  Report Type: 
  Country: None (occurrence: None)
  Receive Date: 20111212
  Receipt Date: 20111207
  Transmission Date: 20120403
  Serious: Yes (Other)
  Sender: FDA-Public Use
  Company Number: US-GLAXOSMITHKLINE-A0957128A

PATIENT
  Age: 70 Year
  Sex: Female

DRUGS (19)
  1. PRAVASTATIN SODIUM [Concomitant]
  2. ADVAIR DISKUS 100/50 [Suspect]
     Dosage: 1PUFF TWICE PER DAY
     Route: 055
     Dates: start: 20100101
  3. NOVOLOG [Concomitant]
  4. BONIVA [Concomitant]
  5. POTASSIUM CHLORIDE [Concomitant]
  6. ASCORBIC ACID [Concomitant]
  7. IRON SUPPLEMENT [Concomitant]
  8. VITAMIN D [Concomitant]
  9. LISINOPRIL [Concomitant]
  10. LANTUS [Concomitant]
  11. TRAZODONE HCL [Concomitant]
  12. TRAMADOL HCL [Concomitant]
  13. ZINC [Concomitant]
  14. ADVAIR DISKUS 100/50 [Suspect]
     Indication: ASTHMA
     Dosage: 1PUFF TWICE PER DAY
     Route: 055
     Dates: start: 20000101
  15. AMITRIPTYLINE HCL [Concomitant]
  16. LEVOTHYROXINE SODIUM [Concomitant]
  17. FLUOXETINE HYDROCHLORIDE [Concomitant]
  18. MAGNESIUM SULFATE [Concomitant]
  19. FUROSEMIDE [Concomitant]

REACTIONS (4)
  - DYSGEUSIA [None]
  - OESOPHAGEAL CANDIDIASIS [None]
  - CANDIDIASIS [None]
  - DRUG INEFFECTIVE [None]
